FAERS Safety Report 8600521-1 (Version None)
Quarter: 2012Q3

REPORT INFORMATION
  Report Type: 
  Country: None (occurrence: None)
  Receive Date: 20120808
  Receipt Date: 20120808
  Transmission Date: 20120928
  Serious: Yes (Other)
  Sender: FDA-Public Use
  Company Number: None

PATIENT
  Sex: Female
  Weight: 68.0396 kg

DRUGS (2)
  1. BACTRIM DS [Suspect]
     Indication: SINUSITIS
     Dosage: 1  EVERY 12 HRS
     Dates: start: 20120302
  2. DOXYCYCLINE HCL [Suspect]
     Indication: STAPHYLOCOCCAL ABSCESS
     Dosage: 1  -  100MG TWICE DAILY
     Dates: start: 20120427

REACTIONS (5)
  - URTICARIA [None]
  - DYSGEUSIA [None]
  - PRURITUS [None]
  - VOMITING [None]
  - ABDOMINAL PAIN UPPER [None]
